FAERS Safety Report 10444785 (Version 5)
Quarter: 2015Q1

REPORT INFORMATION
  Report Type: Spontaneous
  Country: JP (occurrence: JP)
  Receive Date: 20140910
  Receipt Date: 20150324
  Transmission Date: 20150720
  Serious: Yes (Hospitalization)
  Sender: FDA-Public Use
  Company Number: JP-ASTELLAS-2014JP012110

PATIENT
  Age: 64 Year
  Sex: Male

DRUGS (13)
  1. NAIXAN                             /00256201/ [Concomitant]
     Indication: CANCER PAIN
     Route: 048
     Dates: start: 20140510, end: 20140901
  2. OXYCONTIN [Concomitant]
     Active Substance: OXYCODONE HYDROCHLORIDE
     Indication: CANCER PAIN
     Route: 048
     Dates: start: 20140511, end: 20140901
  3. LUPRAC [Concomitant]
     Active Substance: TORSEMIDE
     Indication: CARDIAC VALVE DISEASE
     Route: 048
     Dates: end: 20140901
  4. WARFARIN                           /00014803/ [Concomitant]
     Active Substance: WARFARIN
     Indication: CARDIAC VALVE DISEASE
     Route: 048
     Dates: end: 20140620
  5. GONAX [Suspect]
     Active Substance: DEGARELIX
     Indication: PROSTATE CANCER
     Route: 058
     Dates: start: 201309, end: 20140813
  6. TENORMIN [Concomitant]
     Active Substance: ATENOLOL
     Indication: CARDIAC VALVE DISEASE
     Route: 048
     Dates: end: 20140901
  7. XTANDI [Suspect]
     Active Substance: ENZALUTAMIDE
     Route: 048
     Dates: start: 20140702, end: 20140901
  8. HARNAL [Concomitant]
     Active Substance: TAMSULOSIN HYDROCHLORIDE
     Indication: DYSURIA
     Dosage: 0.2 MG, ONCE DAILY
     Route: 048
     Dates: end: 20140901
  9. TAKEPRON [Concomitant]
     Active Substance: LANSOPRAZOLE
     Indication: CARDIAC VALVE DISEASE
     Route: 048
     Dates: end: 20140901
  10. MUCOSTA [Concomitant]
     Active Substance: REBAMIPIDE
     Indication: PROPHYLAXIS
     Route: 048
     Dates: start: 20140510, end: 20140901
  11. PURSENNIDE                         /00571901/ [Concomitant]
     Indication: PROPHYLAXIS
     Route: 048
     Dates: start: 20140510, end: 20140901
  12. XTANDI [Suspect]
     Active Substance: ENZALUTAMIDE
     Indication: PROSTATE CANCER
     Route: 048
     Dates: start: 20140618, end: 20140623
  13. MYSLEE [Concomitant]
     Active Substance: ZOLPIDEM TARTRATE
     Indication: INSOMNIA
     Route: 048
     Dates: end: 20140901

REACTIONS (2)
  - Intentional product use issue [Unknown]
  - Activated partial thromboplastin time prolonged [Recovered/Resolved]

NARRATIVE: CASE EVENT DATE: 201309
